FAERS Safety Report 7598011-0 (Version None)
Quarter: 2011Q3

REPORT INFORMATION
  Report Type: 
  Country: None (occurrence: None)
  Receive Date: 20110708
  Receipt Date: 20110705
  Transmission Date: 20111222
  Serious: Yes (Death)
  Sender: FDA-Public Use
  Company Number: US-CEPHALON-2011003255

PATIENT
  Sex: Male
  Weight: 84 kg

DRUGS (8)
  1. COUMADIN [Concomitant]
  2. LESCOL [Concomitant]
  3. TREANDA [Suspect]
     Indication: LYMPHOMA
     Route: 042
     Dates: start: 20110505, end: 20110505
  4. ASPIRIN [Concomitant]
  5. FLOMAX [Concomitant]
  6. LANOXIN [Concomitant]
  7. METOPROLOL TARTRATE [Concomitant]
  8. AVODART [Concomitant]

REACTIONS (2)
  - DEATH [None]
  - COUGH [None]
